FAERS Safety Report 17016475 (Version 1)
Quarter: 2019Q4

REPORT INFORMATION
  Report Type: Spontaneous
  Country: US (occurrence: US)
  Receive Date: 20191111
  Receipt Date: 20191111
  Transmission Date: 20200122
  Serious: No
  Sender: FDA-Public Use
  Company Number: US-PFIZER INC-2019482421

PATIENT
  Age: 66 Year
  Sex: Female
  Weight: 99.79 kg

DRUGS (2)
  1. FLUCONAZOLE. [Suspect]
     Active Substance: FLUCONAZOLE
     Indication: VULVOVAGINAL MYCOTIC INFECTION
     Dosage: UNK
     Dates: end: 20191028
  2. FLUCONAZOLE. [Suspect]
     Active Substance: FLUCONAZOLE
     Indication: PRURITUS

REACTIONS (1)
  - Drug ineffective [Unknown]
